FAERS Safety Report 10102341 (Version 1)
Quarter: 2014Q2

REPORT INFORMATION
  Report Type: Spontaneous
  Country: FR (occurrence: FR)
  Receive Date: 20140424
  Receipt Date: 20140424
  Transmission Date: 20141212
  Serious: Yes (Life-Threatening)
  Sender: FDA-Public Use
  Company Number: FR-JNJFOC-20140417026

PATIENT
  Age: 80 Year
  Sex: Female

DRUGS (7)
  1. REMICADE [Suspect]
     Indication: RHEUMATOID ARTHRITIS
     Route: 042
     Dates: start: 20130501, end: 20140221
  2. NOVATREX (METHOTREXATE) [Suspect]
     Indication: RHEUMATOID ARTHRITIS
     Route: 065
     Dates: start: 20130501, end: 20140221
  3. SKENAN [Concomitant]
     Route: 065
  4. AMLOR [Concomitant]
     Route: 065
  5. COAPROVEL [Concomitant]
     Route: 065
  6. SOTALEX [Concomitant]
     Route: 065
  7. TAHOR [Concomitant]
     Route: 065

REACTIONS (1)
  - Lung disorder [Recovering/Resolving]
